FAERS Safety Report 14375583 (Version 1)
Quarter: 2018Q1

REPORT INFORMATION
  Report Type: Spontaneous
  Country: US (occurrence: US)
  Receive Date: 20180110
  Receipt Date: 20180110
  Transmission Date: 20180509
  Serious: Yes (Hospitalization)
  Sender: FDA-Public Use
  Company Number: None

PATIENT
  Age: 54 Year
  Sex: Male
  Weight: 89.55 kg

DRUGS (1)
  1. ERBITUX [Suspect]
     Active Substance: CETUXIMAB
     Indication: COLON CANCER METASTATIC
     Dosage: ?          OTHER FREQUENCY:ONCE;?
     Route: 042

REACTIONS (8)
  - Oxygen saturation decreased [None]
  - Pruritus [None]
  - Burning sensation [None]
  - Generalised erythema [None]
  - Blood pressure decreased [None]
  - Seizure [None]
  - Heart rate increased [None]
  - Respiratory rate decreased [None]

NARRATIVE: CASE EVENT DATE: 20180110
